FAERS Safety Report 9556764 (Version 1)
Quarter: 2013Q3

REPORT INFORMATION
  Report Type: Spontaneous
  Country: US (occurrence: US)
  Receive Date: 20130926
  Receipt Date: 20130926
  Transmission Date: 20140515
  Serious: No
  Sender: FDA-Public Use
  Company Number: US-PFIZER INC-2013276287

PATIENT
  Sex: Female

DRUGS (6)
  1. LYRICA [Suspect]
     Dosage: UNK
  2. BACTRIM [Suspect]
     Dosage: UNK
  3. DPT [Suspect]
     Dosage: UNK
  4. LORTAB [Suspect]
     Dosage: UNK
  5. PLAQUENIL [Suspect]
     Dosage: UNK
  6. VOLTAREN [Suspect]
     Dosage: UNK

REACTIONS (3)
  - Oedema [Unknown]
  - Feeling abnormal [Unknown]
  - Constipation [Unknown]
